FAERS Safety Report 12946949 (Version 3)
Quarter: 2016Q4

REPORT INFORMATION
  Report Type: Spontaneous
  Country: US (occurrence: US)
  Receive Date: 20161116
  Receipt Date: 20161220
  Transmission Date: 20170207
  Serious: No
  Sender: FDA-Public Use
  Company Number: US-PFIZER INC-2016449686

PATIENT
  Age: 61 Year
  Sex: Male

DRUGS (1)
  1. LYRICA [Suspect]
     Active Substance: PREGABALIN
     Indication: FIBROMYALGIA
     Dosage: 400 MG, 2X/DAY (2 CAPSULE TWICE A DAY 90 DAYS)
     Route: 048

REACTIONS (7)
  - Activities of daily living impaired [Unknown]
  - Feeling abnormal [Unknown]
  - Prescribed overdose [Unknown]
  - Diarrhoea [Unknown]
  - Nausea [Unknown]
  - Withdrawal syndrome [Unknown]
  - Pain [Unknown]
